FAERS Safety Report 12651324 (Version 1)
Quarter: 2016Q3

REPORT INFORMATION
  Report Type: Other
  Country: US (occurrence: US)
  Receive Date: 20160815
  Receipt Date: 20160815
  Transmission Date: 20161109
  Serious: Yes (Life-Threatening, Hospitalization, Other)
  Sender: FDA-Public Use
  Company Number: US-ENDO PHARMACEUTICALS INC-2016-004920

PATIENT
  Age: 32 Year
  Sex: Male

DRUGS (2)
  1. CLONAZEPAM 2MG [Suspect]
     Active Substance: CLONAZEPAM
     Route: 065
  2. CLONAZEPAM 2MG [Suspect]
     Active Substance: CLONAZEPAM
     Indication: PRODUCT USED FOR UNKNOWN INDICATION
     Dosage: 15 PILLS OF 2MG
     Route: 065

REACTIONS (3)
  - Glucocorticoid deficiency [Recovered/Resolved]
  - Hypotension [Recovered/Resolved]
  - Intentional overdose [Recovered/Resolved]
